FAERS Safety Report 5383875-1 (Version None)
Quarter: 2007Q3

REPORT INFORMATION
  Report Type: 
  Country: None (occurrence: None)
  Receive Date: 20070706
  Receipt Date: 20070427
  Transmission Date: 20080115
  Serious: Yes (Other)
  Sender: FDA-Public Use
  Company Number: 2007BM000072

PATIENT
  Age: 25 Year
  Sex: Male
  Weight: 21.7 kg

DRUGS (1)
  1. NAGLAZYME  (GALSULFASE) SOLUTION (EXCEPT SYRUP), 1.0MG/ML [Suspect]
     Indication: MUCOPOLYSACCHARIDOSIS VI
     Dosage: 1 MG/MKG; QW; IV
     Route: 042
     Dates: start: 20070328, end: 20070425

REACTIONS (8)
  - AGITATION [None]
  - BLOOD PRESSURE DIASTOLIC INCREASED [None]
  - HEART RATE INCREASED [None]
  - INFUSION RELATED REACTION [None]
  - MALAISE [None]
  - OXYGEN SATURATION DECREASED [None]
  - PALLOR [None]
  - REFUSAL OF TREATMENT BY RELATIVE [None]
